FAERS Safety Report 5009326-4 (Version None)
Quarter: 2006Q2

REPORT INFORMATION
  Report Type: 
  Country: None (occurrence: None)
  Receive Date: 20060524
  Receipt Date: 20060519
  Transmission Date: 20061013
  Serious: Yes (Hospitalization, Disabling)
  Sender: FDA-Public Use
  Company Number: US-RB-3344-2006

PATIENT
  Sex: Male
  Weight: 90.8 kg

DRUGS (8)
  1. BUPRENORPHINE HCL [Suspect]
     Indication: PAIN
     Route: 060
     Dates: start: 20060405, end: 20060515
  2. BUPRENORPHINE HCL [Suspect]
     Route: 060
     Dates: start: 20060516
  3. FENTANYL [Concomitant]
     Indication: PAIN
     Dosage: PATCH
     Dates: start: 20060516
  4. MODAFINIL [Concomitant]
     Indication: FATIGUE
     Route: 048
     Dates: start: 20060509
  5. GABAPENTIN [Concomitant]
     Indication: PAIN
     Route: 048
     Dates: start: 20060401
  6. ESCITALOPRAM OXALATE [Concomitant]
     Indication: ANXIETY
     Route: 048
     Dates: start: 20060401
  7. HYDROCHLOROTHIAZIDE [Concomitant]
     Route: 048
  8. LISINOPRIL [Concomitant]
     Route: 048

REACTIONS (2)
  - AMMONIA INCREASED [None]
  - FATIGUE [None]
